FAERS Safety Report 10452450 (Version 1)
Quarter: 2014Q3

REPORT INFORMATION
  Report Type: Not Available
  Country: IN (occurrence: IN)
  Receive Date: 20140915
  Receipt Date: 20140915
  Transmission Date: 20150326
  Serious: No
  Sender: FDA-Public Use
  Company Number: IN-LUPIN PHARMACEUTICALS INC.-2014-01437

PATIENT
  Age: 30 Year
  Sex: Female

DRUGS (4)
  1. PANTODAC DSR [Concomitant]
     Indication: PRODUCT USED FOR UNKNOWN INDICATION
     Route: 065
  2. LORNA SR [Concomitant]
     Indication: PRODUCT USED FOR UNKNOWN INDICATION
     Route: 065
  3. REMYLIN D [Concomitant]
     Indication: PRODUCT USED FOR UNKNOWN INDICATION
     Route: 065
  4. DULOT [Suspect]
     Active Substance: DULOXETINE
     Indication: CHEST PAIN
     Route: 048
     Dates: start: 20140808, end: 20140811

REACTIONS (5)
  - Malaise [Recovered/Resolved]
  - Off label use [Unknown]
  - Head discomfort [Recovered/Resolved]
  - Asthenia [Recovered/Resolved]
  - Nausea [Recovered/Resolved]

NARRATIVE: CASE EVENT DATE: 20140808
